FAERS Safety Report 6493770-2 (Version None)
Quarter: 2009Q4

REPORT INFORMATION
  Report Type: 
  Country: None (occurrence: None)
  Receive Date: 20091214
  Receipt Date: 20081223
  Transmission Date: 20100525
  Serious: Yes (Disabling, Other)
  Sender: FDA-Public Use
  Company Number: US-BRISTOL-MYERS SQUIBB COMPANY-14382204

PATIENT
  Age: 16 Year
  Sex: Female

DRUGS (2)
  1. ABILIFY [Suspect]
     Indication: AFFECTIVE DISORDER
     Dosage: ALSO RECEIVED ABILIFY FROM 27-NOV-2006,INTERMITTENT USE FOR 22 MONTHS.
     Route: 048
     Dates: start: 20080807, end: 20080922
  2. SEROQUEL [Concomitant]
     Dates: start: 20080701, end: 20080801

REACTIONS (1)
  - OCULOGYRIC CRISIS [None]
